FAERS Safety Report 6711428-9 (Version None)
Quarter: 2010Q2

REPORT INFORMATION
  Report Type: 
  Country: None (occurrence: None)
  Receive Date: 20100504
  Receipt Date: 20100504
  Transmission Date: 20101027
  Serious: Yes (Hospitalization)
  Sender: FDA-Public Use
  Company Number: None

PATIENT
  Sex: Female
  Weight: 86.6 kg

DRUGS (6)
  1. TAXOL [Suspect]
     Dosage: 418 MG
     Dates: end: 20100420
  2. CARBOPLATIN [Suspect]
     Dosage: 763 MG
     Dates: end: 20100420
  3. AMLOPDIPINE [Concomitant]
  4. ATACAND [Concomitant]
  5. ATENOLOL [Concomitant]
  6. HYDROCHLOROTHIAZIDE [Concomitant]

REACTIONS (3)
  - BRADYCARDIA [None]
  - HYPOTENSION [None]
  - PRESYNCOPE [None]
